FAERS Safety Report 10584838 (Version 1)
Quarter: 2014Q4

REPORT INFORMATION
  Report Type: Spontaneous
  Country: US (occurrence: None)
  Receive Date: 20141113
  Receipt Date: 20141113
  Transmission Date: 20150529
  Serious: Yes (Other)
  Sender: FDA-Public Use
  Company Number: M-14-072

PATIENT
  Age: 61 Year
  Sex: Female

DRUGS (4)
  1. TRIAMTERENE/HCTZ CAPS. 37.5/25 MG [Suspect]
     Active Substance: HYDROCHLOROTHIAZIDE\TRIAMTERENE
     Indication: HYPERTENSION
  2. ATENOLOL. [Concomitant]
     Active Substance: ATENOLOL
  3. FISH OIL SUPPLEMENTS [Concomitant]
     Active Substance: FISH OIL
  4. ATORVASTATIN [Concomitant]
     Active Substance: ATORVASTATIN

REACTIONS (4)
  - Skin discolouration [None]
  - Hypersensitivity [None]
  - Skin disorder [None]
  - Drug hypersensitivity [None]

NARRATIVE: CASE EVENT DATE: 201404
